FAERS Safety Report 4957297-9 (Version None)
Quarter: 2006Q1

REPORT INFORMATION
  Report Type: 
  Country: None (occurrence: None)
  Receive Date: 20060323
  Receipt Date: 20060314
  Transmission Date: 20060701
  Serious: Yes (Death, Other)
  Sender: FDA-Public Use
  Company Number: USA0506101091

PATIENT
  Age: 62 Year
  Sex: Male
  Weight: 86.2 kg

DRUGS (13)
  1. GEMZAR [Suspect]
     Indication: MESOTHELIOMA
     Dosage: 800 MG, INTRAVENOUS
     Route: 042
     Dates: start: 20041207, end: 20050405
  2. ALIMTA [Suspect]
     Indication: MESOTHELIOMA
     Dates: start: 20040421, end: 20050503
  3. PROCRIT [Concomitant]
  4. ARANESP [Concomitant]
  5. RANITIDINE [Concomitant]
  6. DECADRON [Concomitant]
  7. VITAMIN B12 [Concomitant]
  8. FOLIC ACID [Concomitant]
  9. BENADRYL/OLD FORM/(DIPHENHYDRAMINE HYDROCHLORIDE) [Concomitant]
  10. CISPLATIN [Concomitant]
  11. PALONOSETRON HYDROCHLORIDE [Concomitant]
  12. NEULASTA [Concomitant]
  13. ROCEPHIN /GFR/(CEFTRIAXONE SODIUM) [Concomitant]

REACTIONS (13)
  - ACUTE RESPIRATORY FAILURE [None]
  - BRONCHITIS ACUTE [None]
  - BRONCHOPNEUMONIA [None]
  - DIFFUSE ALVEOLAR DAMAGE [None]
  - HAEMOGLOBIN DECREASED [None]
  - HAEMORRHAGE [None]
  - INTERSTITIAL LUNG DISEASE [None]
  - MALIGNANT NEOPLASM PROGRESSION [None]
  - PLEURAL FIBROSIS [None]
  - PNEUMONIA [None]
  - PULMONARY CONGESTION [None]
  - PULMONARY TOXICITY [None]
  - THROMBOCYTOPENIA [None]
